FAERS Safety Report 5315020-2 (Version None)
Quarter: 2007Q2

REPORT INFORMATION
  Report Type: 
  Country: None (occurrence: None)
  Receive Date: 20070426
  Receipt Date: 20070417
  Transmission Date: 20071010
  Serious: Yes (Hospitalization)
  Sender: FDA-Public Use
  Company Number: 163-20785-06100394

PATIENT
  Sex: Female

DRUGS (8)
  1. THALOMID [Suspect]
     Indication: MULTIPLE MYELOMA
     Dosage: 150 MG, 3 IN 1 D, ORAL
     Route: 048
     Dates: start: 20060906
  2. DEXAMETHASONE TAB [Concomitant]
  3. XELODA [Concomitant]
  4. TYLENOL [Concomitant]
  5. MULTIVITAMIN [Concomitant]
  6. FISH OIL (FISH OIL) [Concomitant]
  7. VITAMIN E [Concomitant]
  8. VICODIN [Concomitant]

REACTIONS (2)
  - LOWER LIMB FRACTURE [None]
  - METASTASES TO BONE [None]
